FAERS Safety Report 4566780-X (Version None)
Quarter: 2005Q1

REPORT INFORMATION
  Report Type: 
  Country: None (occurrence: None)
  Receive Date: 20050201
  Receipt Date: 20011016
  Transmission Date: 20050727
  Serious: Yes (Other)
  Sender: FDA-Public Use
  Company Number: US-BRISTOL-MYERS SQUIBB COMPANY-11591567

PATIENT
  Sex: Male

DRUGS (2)
  1. STADOL [Suspect]
     Route: 045
  2. STADOL [Suspect]

REACTIONS (1)
  - DEPENDENCE [None]
